FAERS Safety Report 11004783 (Version 2)
Quarter: 2015Q2

REPORT INFORMATION
  Report Type: Report from Study
  Country: DO (occurrence: DO)
  Receive Date: 20150409
  Receipt Date: 20150428
  Transmission Date: 20150821
  Serious: No
  Sender: FDA-Public Use
  Company Number: PHHY2015DO039882

PATIENT
  Age: 15 Year
  Sex: Female

DRUGS (5)
  1. EXJADE [Suspect]
     Active Substance: DEFERASIROX
     Indication: SICKLE CELL ANAEMIA
     Dosage: 750 MG (500 MG AM AND 250 MG PM)
     Route: 048
  2. ANTICOAGULANTS [Concomitant]
     Active Substance: UNSPECIFIED INGREDIENT
     Indication: CEREBROVASCULAR STENOSIS
     Route: 065
  3. ACIDO FOLICO//FOLIC ACID [Concomitant]
     Active Substance: FOLIC ACID
     Indication: SICKLE CELL ANAEMIA
     Route: 065
  4. ASPIRIN. [Concomitant]
     Active Substance: ASPIRIN
     Indication: CEREBROVASCULAR STENOSIS
     Dosage: 1 OT, QD
     Route: 065
  5. SOMAZINA [Concomitant]
     Indication: PRODUCT USED FOR UNKNOWN INDICATION
     Dosage: 500 MG, QD
     Route: 065

REACTIONS (1)
  - Nausea [Unknown]
